FAERS Safety Report 14033891 (Version 3)
Quarter: 2017Q4

REPORT INFORMATION
  Report Type: Spontaneous
  Country: US (occurrence: US)
  Receive Date: 20171003
  Receipt Date: 20171227
  Transmission Date: 20180321
  Serious: No
  Sender: FDA-Public Use
  Company Number: US-009507513-1709USA008628

PATIENT
  Sex: Female
  Weight: 137.87 kg

DRUGS (4)
  1. NEXPLANON [Suspect]
     Active Substance: ETONOGESTREL
     Indication: CONTRACEPTION
     Dosage: 1 ROD/3 YEARS
     Route: 058
     Dates: start: 201702, end: 20170913
  2. ZOLPIDEM TARTRATE. [Concomitant]
     Active Substance: ZOLPIDEM TARTRATE
     Dosage: 1 TABLET AT BEDTIME AS NEEDED,, ONCE A DAY
     Route: 048
  3. FLUOXETINE [Concomitant]
     Active Substance: FLUOXETINE HYDROCHLORIDE
     Dosage: 1 CAPSULE IN THE MOINING, ONCE A DAY
     Route: 048
  4. LAMOTRIGINE. [Concomitant]
     Active Substance: LAMOTRIGINE
     Dosage: 1 TABLET, ONCE A DAY
     Route: 048

REACTIONS (8)
  - Device kink [Recovered/Resolved]
  - Product quality issue [Unknown]
  - Menstruation irregular [Unknown]
  - Pain in extremity [Unknown]
  - Implant site pain [Unknown]
  - Vaginal haemorrhage [Unknown]
  - Device breakage [Recovered/Resolved]
  - Complication associated with device [Recovered/Resolved]

NARRATIVE: CASE EVENT DATE: 2017
